FAERS Safety Report 5007939-7 (Version None)
Quarter: 2006Q2

REPORT INFORMATION
  Report Type: 
  Country: None (occurrence: None)
  Receive Date: 20060517
  Receipt Date: 20060515
  Transmission Date: 20061013
  Serious: Yes (Hospitalization)
  Sender: FDA-Public Use
  Company Number: 220262

PATIENT
  Age: 57 Year
  Sex: Female

DRUGS (4)
  1. AVASTIN [Suspect]
     Indication: COLORECTAL CANCER
     Dosage: 512 MG, QD, INTRAVENOUS
     Route: 042
     Dates: start: 20051104
  2. CAPECITABINE            (CAPECITABINE) [Suspect]
     Indication: COLORECTAL CANCER
     Dosage: 3600 MG, QD, ORAL
     Route: 048
     Dates: start: 20051104
  3. OXALIPLATIN        (OXALIPLATIN) [Suspect]
     Indication: COLORECTAL CANCER
     Dosage: 235 MG, QD, INTRAVENUS
     Route: 042
     Dates: start: 20051104
  4. ERBITUX [Suspect]
     Indication: COLORECTAL CANCER
     Dosage: 720 MG, QD, INTRAVENOUS
     Route: 042
     Dates: start: 20051104

REACTIONS (1)
  - PYREXIA [None]
